FAERS Safety Report 8030877-2 (Version None)
Quarter: 2012Q1

REPORT INFORMATION
  Report Type: 
  Country: None (occurrence: None)
  Receive Date: 20120109
  Receipt Date: 20120103
  Transmission Date: 20120608
  Serious: Yes (Death, Hospitalization, Other)
  Sender: FDA-Public Use
  Company Number: US-PFIZER INC-2011303120

PATIENT
  Sex: Female
  Weight: 52.381 kg

DRUGS (20)
  1. VITAMIN B-12 [Concomitant]
     Dosage: UNK
     Route: 030
     Dates: start: 20110301
  2. VICODIN [Concomitant]
     Indication: CONSTIPATION
     Dosage: 5-325 MG 1 TO 2 TABLETS EVERY BEDTIME
     Route: 048
  3. VICODIN [Concomitant]
     Dosage: 5 MG-500 MG
  4. NEURONTIN [Concomitant]
     Dosage: 300 MG, UNK
  5. DECADRON [Concomitant]
     Dosage: 4 MG, PER 8 HOURS X2 DAYS FOLLOWED BY 4MG EVERY 12 HOURS
     Route: 048
  6. ALIMTA [Concomitant]
     Indication: LUNG NEOPLASM MALIGNANT
  7. CALCIUM WITH VITAMIN D [Concomitant]
     Dosage: 1250 MG, UNK
  8. NAPROXEN (ALEVE) [Concomitant]
     Dosage: UNK
  9. ZOMETA [Concomitant]
     Indication: METASTASES TO BONE
  10. ZOFRAN [Concomitant]
  11. XALKORI [Suspect]
     Indication: LUNG CARCINOMA CELL TYPE UNSPECIFIED STAGE IV
     Dosage: 250 MG, 2X/DAY
     Route: 048
     Dates: start: 20111103, end: 20110101
  12. LIDODERM [Concomitant]
     Dosage: 5 % FOR 12 HOURS EVERY 24 HOURS
  13. CIPROFLOXACIN [Concomitant]
     Dosage: 500 MG, 2X/DAY
  14. ERBITUX [Concomitant]
     Indication: LUNG NEOPLASM MALIGNANT
     Dosage: UNK
  15. LIDODERM [Concomitant]
     Indication: POST HERPETIC NEURALGIA
     Dosage: 5 %; 700 MG/PATCH
  16. CLEOCIN T [Concomitant]
     Dosage: 1 %, 2X/DAY
  17. MULTI-VITAMINS [Concomitant]
     Dosage: UNK
     Route: 048
  18. PROCHLORPERAZINE MALEATE [Concomitant]
     Dosage: 10 MG, UNK
  19. FOLIC ACID [Concomitant]
     Dosage: 1 MG, DAILY
  20. ACETAMINOPHEN [Concomitant]
     Dosage: 325 MG, UNK

REACTIONS (12)
  - COGNITIVE DISORDER [None]
  - HALLUCINATION, VISUAL [None]
  - VISION BLURRED [None]
  - DISEASE PROGRESSION [None]
  - DUODENAL ULCER [None]
  - GASTRITIS [None]
  - LUNG CARCINOMA CELL TYPE UNSPECIFIED STAGE IV [None]
  - CONFUSIONAL STATE [None]
  - DEATH [None]
  - OESOPHAGITIS ULCERATIVE [None]
  - AMNESIA [None]
  - MENTAL STATUS CHANGES [None]
